FAERS Safety Report 9782071 (Version 5)
Quarter: 2014Q1

REPORT INFORMATION
  Report Type: Spontaneous
  Country: JP (occurrence: JP)
  Receive Date: 20131226
  Receipt Date: 20140204
  Transmission Date: 20141002
  Serious: Yes (Hospitalization)
  Sender: FDA-Public Use
  Company Number: JP-ROCHE-1323539

PATIENT
  Age: 70 Year
  Sex: Female
  Weight: 38 kg

DRUGS (11)
  1. MIRCERA [Suspect]
     Indication: NEPHROGENIC ANAEMIA
     Route: 042
     Dates: start: 20131109, end: 20131109
  2. MIRCERA [Suspect]
     Indication: NEPHROGENIC ANAEMIA
     Route: 058
     Dates: start: 20131123, end: 20131123
  3. NESP [Suspect]
     Indication: NEPHROGENIC ANAEMIA
     Route: 042
     Dates: start: 20131207, end: 20131207
  4. NESP [Suspect]
     Indication: NEPHROGENIC ANAEMIA
     Route: 042
     Dates: start: 20131214, end: 20131214
  5. CLEANAL [Concomitant]
     Route: 048
  6. NESINA [Concomitant]
     Route: 048
  7. AMBROXOL HYDROCHLORIDE [Concomitant]
     Dosage: DOSAGE IS UNCERTAIN.
     Route: 048
  8. BAYASPIRIN [Concomitant]
     Route: 048
  9. KALIMATE [Concomitant]
     Dosage: DOSAGE IS UNCERTAIN.
     Route: 048
  10. HOKUNALIN [Concomitant]
     Route: 062
  11. ALOSENN [Concomitant]
     Route: 048

REACTIONS (2)
  - Anaemia [Not Recovered/Not Resolved]
  - Pneumonia [Recovered/Resolved]
